FAERS Safety Report 4928102-1 (Version None)
Quarter: 2006Q1

REPORT INFORMATION
  Report Type: 
  Country: None (occurrence: None)
  Receive Date: 20060223
  Receipt Date: 20060213
  Transmission Date: 20060701
  Serious: Yes (Other)
  Sender: FDA-Public Use
  Company Number: GXKR2006GB00969

PATIENT
  Age: 21 Year
  Sex: Male

DRUGS (2)
  1. CITALOPRAM HYDROBROMIDE [Suspect]
     Indication: DEPRESSION
     Dosage: 20 MG, QD, ORAL
     Route: 048
     Dates: start: 20051201, end: 20060121
  2. PROMETHAZINE [Concomitant]

REACTIONS (9)
  - ABDOMINAL PAIN [None]
  - ABNORMAL DREAMS [None]
  - DIARRHOEA [None]
  - HALLUCINATION [None]
  - ORTHOSTATIC HYPOTENSION [None]
  - POLLAKIURIA [None]
  - SALIVARY HYPERSECRETION [None]
  - TACHYCARDIA [None]
  - WEIGHT DECREASED [None]
